FAERS Safety Report 12160770 (Version 1)
Quarter: 2016Q1

REPORT INFORMATION
  Report Type: Spontaneous
  Country: AT (occurrence: AT)
  Receive Date: 20160308
  Receipt Date: 20160308
  Transmission Date: 20160526
  Serious: Yes (Hospitalization, Other)
  Sender: FDA-Public Use
  Company Number: AT-009507513-1603AUT002621

PATIENT
  Age: 53 Year
  Sex: Female

DRUGS (1)
  1. ATOZET [Suspect]
     Active Substance: ATORVASTATIN CALCIUM\EZETIMIBE
     Indication: HYPERLIPIDAEMIA
     Dosage: UNK
     Route: 048
     Dates: end: 20160120

REACTIONS (2)
  - Blood cholesterol increased [Unknown]
  - Acute kidney injury [Recovered/Resolved]

NARRATIVE: CASE EVENT DATE: 20160120
